FAERS Safety Report 10353381 (Version 5)
Quarter: 2016Q1

REPORT INFORMATION
  Report Type: Spontaneous
  Country: CA (occurrence: CA)
  Receive Date: 20140731
  Receipt Date: 20160113
  Transmission Date: 20160525
  Serious: Yes (Other)
  Sender: FDA-Public Use
  Company Number: CA-ROCHE-1443074

PATIENT
  Age: 59 Year
  Sex: Female

DRUGS (4)
  1. SINGULAIR [Concomitant]
     Active Substance: MONTELUKAST SODIUM
     Indication: ASTHMA
  2. XOLAIR [Suspect]
     Active Substance: OMALIZUMAB
     Route: 058
     Dates: start: 20141112
  3. XOLAIR [Suspect]
     Active Substance: OMALIZUMAB
     Indication: ASTHMA
     Route: 058
     Dates: start: 20140616
  4. SYMBICORT [Concomitant]
     Active Substance: BUDESONIDE\FORMOTEROL FUMARATE DIHYDRATE
     Indication: ASTHMA

REACTIONS (19)
  - Lung disorder [Unknown]
  - Pleurisy [Recovered/Resolved]
  - Thrombosis [Unknown]
  - Chest pain [Recovered/Resolved]
  - Arthralgia [Unknown]
  - Eye discharge [Unknown]
  - Pharyngeal exudate [Unknown]
  - Oropharyngeal pain [Unknown]
  - Loss of consciousness [Unknown]
  - Nasopharyngitis [Unknown]
  - Back pain [Unknown]
  - Tympanic membrane perforation [Not Recovered/Not Resolved]
  - Neoplasm malignant [Unknown]
  - Hypotension [Recovered/Resolved]
  - Respiratory disorder [Unknown]
  - Otorrhoea [Unknown]
  - Eustachian tube obstruction [Not Recovered/Not Resolved]
  - Malaise [Unknown]
  - Pain in extremity [Unknown]

NARRATIVE: CASE EVENT DATE: 20140721
